FAERS Safety Report 8017247-8 (Version None)
Quarter: 2012Q1

REPORT INFORMATION
  Report Type: 
  Country: None (occurrence: None)
  Receive Date: 20120102
  Receipt Date: 20111229
  Transmission Date: 20120608
  Serious: Yes (Other)
  Sender: FDA-Public Use
  Company Number: PHHY2011DE108813

PATIENT
  Sex: Female

DRUGS (2)
  1. KEPPRA [Concomitant]
     Indication: EPILEPSY
  2. EXTAVIA [Suspect]
     Indication: MULTIPLE SCLEROSIS
     Dosage: 1 ML, QOD
     Route: 058
     Dates: start: 20110818

REACTIONS (7)
  - MOVEMENT DISORDER [None]
  - BACK PAIN [None]
  - INJECTION SITE DISCOLOURATION [None]
  - RETINAL HAEMORRHAGE [None]
  - HYPERSENSITIVITY [None]
  - PHOTOPSIA [None]
  - INJECTION SITE ERYTHEMA [None]
